FAERS Safety Report 6985497-5 (Version None)
Quarter: 2010Q3

REPORT INFORMATION
  Report Type: 
  Country: None (occurrence: None)
  Receive Date: 20100915
  Receipt Date: 20100908
  Transmission Date: 20110219
  Serious: Yes (Hospitalization)
  Sender: FDA-Public Use
  Company Number: B0673924A

PATIENT
  Sex: Male

DRUGS (1)
  1. AVANDIA [Suspect]
     Route: 065
     Dates: start: 20060501

REACTIONS (14)
  - ANGINA PECTORIS [None]
  - ARTERIAL STENT INSERTION [None]
  - ARTERIOGRAM CORONARY ABNORMAL [None]
  - BLOOD GLUCOSE INCREASED [None]
  - CHEST DISCOMFORT [None]
  - DYSPNOEA [None]
  - FATIGUE [None]
  - MALAISE [None]
  - MENTAL DISORDER [None]
  - MYOCARDIAL INFARCTION [None]
  - PAIN [None]
  - SELF ESTEEM DECREASED [None]
  - THIRST [None]
  - WEIGHT DECREASED [None]
